FAERS Safety Report 6056674-5 (Version None)
Quarter: 2009Q1

REPORT INFORMATION
  Report Type: 
  Country: None (occurrence: None)
  Receive Date: 20090126
  Receipt Date: 20090126
  Transmission Date: 20090719
  Serious: Yes (Hospitalization)
  Sender: FDA-Public Use
  Company Number: None

PATIENT
  Age: 80 Year
  Sex: Male
  Weight: 105 kg

DRUGS (7)
  1. DASATINIB [Suspect]
     Indication: PROSTATE CANCER METASTATIC
     Dosage: 70 MG BID PO
     Route: 048
     Dates: start: 20080923, end: 20081002
  2. FLOMAX [Concomitant]
  3. NITROGLYCERIN [Concomitant]
  4. LIPITOR [Concomitant]
  5. DIOVAN [Concomitant]
  6. ASPIRIN [Concomitant]
  7. LASIX [Concomitant]

REACTIONS (1)
  - CARDIAC FAILURE CONGESTIVE [None]
